FAERS Safety Report 10219209 (Version 1)
Quarter: 2014Q2

REPORT INFORMATION
  Report Type: Other
  Country: ES (occurrence: ES)
  Receive Date: 20140605
  Receipt Date: 20140605
  Transmission Date: 20141212
  Serious: Yes (Other)
  Sender: FDA-Public Use
  Company Number: ES-ASTELLAS-2014EU006672

PATIENT
  Age: 78 Year
  Sex: Female

DRUGS (1)
  1. BETMIGA [Suspect]
     Indication: HYPERTONIC BLADDER
     Dosage: 50 MG, DAILY
     Route: 048
     Dates: start: 20140422, end: 20140428

REACTIONS (2)
  - Swollen tongue [Recovered/Resolved]
  - Tongue disorder [Recovered/Resolved]
